FAERS Safety Report 7292683-6 (Version None)
Quarter: 2011Q1

REPORT INFORMATION
  Report Type: 
  Country: None (occurrence: None)
  Receive Date: 20110215
  Receipt Date: 20110202
  Transmission Date: 20110831
  Serious: Yes (Other)
  Sender: FDA-Public Use
  Company Number: PHHY2011BR05686

PATIENT
  Sex: Male

DRUGS (1)
  1. DIOVAN AMLO FIX [Suspect]
     Indication: HYPERTENSION
     Dosage: 320/5 MG

REACTIONS (11)
  - HEAD DISCOMFORT [None]
  - NECK PAIN [None]
  - FEELING ABNORMAL [None]
  - HEADACHE [None]
  - BLOOD PRESSURE INADEQUATELY CONTROLLED [None]
  - BLOOD PRESSURE DECREASED [None]
  - INFARCTION [None]
  - CEREBROVASCULAR ACCIDENT [None]
  - BACK PAIN [None]
  - HYPERTENSION [None]
  - TENSION HEADACHE [None]
